FAERS Safety Report 26144570 (Version 1)
Quarter: 2025Q4

REPORT INFORMATION
  Report Type: Spontaneous
  Country: AU (occurrence: AU)
  Receive Date: 20251211
  Receipt Date: 20251211
  Transmission Date: 20260117
  Serious: Yes (Life-Threatening, Hospitalization, Other)
  Sender: SANOFI AVENTIS
  Company Number: AU-DialogSolutions-SAAVPROD-PI851144-C1

PATIENT
  Age: 27 Year
  Sex: Female

DRUGS (4)
  1. INSULIN GLARGINE [Suspect]
     Active Substance: INSULIN GLARGINE
     Indication: Type 2 diabetes mellitus
     Dosage: 3150  IU
     Route: 058
  2. INSULIN ASPART [Suspect]
     Active Substance: INSULIN ASPART
     Indication: Type 2 diabetes mellitus
     Dosage: 6000  IU
     Route: 058
  3. DEXTROSE [Suspect]
     Active Substance: DEXTROSE MONOHYDRATE
     Indication: Hypoglycaemia
     Dosage: 50 ML (50%)
     Route: 040
  4. DEXTROSE [Suspect]
     Active Substance: DEXTROSE MONOHYDRATE
     Dosage: UNK (DOSE REDUCTION)

REACTIONS (7)
  - Liver injury [Recovering/Resolving]
  - Hepatic steatosis [Recovering/Resolving]
  - Diabetic hepatopathy [Recovering/Resolving]
  - Abdominal pain upper [Recovering/Resolving]
  - Self-medication [Unknown]
  - Hypoglycaemia [Recovered/Resolved]
  - Intentional overdose [Unknown]
